FAERS Safety Report 19315792 (Version 2)
Quarter: 2021Q2

REPORT INFORMATION
  Report Type: Spontaneous
  Country: GB (occurrence: GB)
  Receive Date: 20210527
  Receipt Date: 20210607
  Transmission Date: 20210717
  Serious: Yes (Other)
  Sender: FDA-Public Use
  Company Number: GB-BAYER-2021-141673

PATIENT
  Age: 42 Year
  Sex: Female

DRUGS (1)
  1. PROGYNOVA? TS 50 MICROGRAMS/24 HOURS TRANSDERMAL P [Suspect]
     Active Substance: ESTRADIOL VALERATE
     Indication: MENOPAUSE
     Route: 065
     Dates: start: 20200903, end: 20200907

REACTIONS (2)
  - Myalgia [Recovering/Resolving]
  - Migraine [Recovering/Resolving]

NARRATIVE: CASE EVENT DATE: 20200904
